FAERS Safety Report 5806632-8 (Version None)
Quarter: 2008Q3

REPORT INFORMATION
  Report Type: 
  Country: None (occurrence: None)
  Receive Date: 20080710
  Receipt Date: 20080707
  Transmission Date: 20090109
  Serious: Yes (Death, Hospitalization, Other)
  Sender: FDA-Public Use
  Company Number: PHBS2007FI17417

PATIENT
  Sex: Female

DRUGS (8)
  1. EXJADE [Suspect]
     Indication: MYELODYSPLASTIC SYNDROME
     Dosage: 1500 MG/D
     Route: 065
     Dates: start: 20060202, end: 20070123
  2. ATACAND [Concomitant]
     Indication: BLOOD PRESSURE
     Dosage: 16 MG, QD
     Dates: start: 20050501, end: 20070123
  3. EMCONCOR [Concomitant]
     Indication: BLOOD PRESSURE
     Dosage: 5 MG, QD
     Dates: start: 20050501, end: 20070123
  4. THYROXIN [Concomitant]
     Dosage: 0.1 MG, QD
     Dates: start: 20050301
  5. OXYCONTIN [Concomitant]
     Dosage: 5 MG, BID
     Dates: start: 20070104
  6. RED BLOOD CELLS [Concomitant]
     Dosage: 2 UNITS
     Dates: start: 20070104, end: 20070104
  7. RED BLOOD CELLS [Concomitant]
     Dosage: 1 UNIT
     Dates: start: 20070105, end: 20070105
  8. TRAMAL [Concomitant]
     Dosage: 50 MG X 2 WHEN NEEDED

REACTIONS (21)
  - ACUTE LEUKAEMIA [None]
  - ANAEMIA [None]
  - ARTERIOSCLEROSIS [None]
  - BACK PAIN [None]
  - C-REACTIVE PROTEIN INCREASED [None]
  - CARDIAC FAILURE [None]
  - CHEST PAIN [None]
  - CORONARY ARTERY DISEASE [None]
  - DYSPNOEA [None]
  - HAEMOGLOBIN DECREASED [None]
  - HEPATIC CONGESTION [None]
  - LEFT VENTRICULAR HYPERTROPHY [None]
  - LUNG DISORDER [None]
  - MALAISE [None]
  - MYELODYSPLASTIC SYNDROME [None]
  - PLATELET COUNT DECREASED [None]
  - PNEUMONIA [None]
  - PRODUCTIVE COUGH [None]
  - PULMONARY OEDEMA [None]
  - PYREXIA [None]
  - RALES [None]
